FAERS Safety Report 4747074-6 (Version None)
Quarter: 2005Q3

REPORT INFORMATION
  Report Type: 
  Country: None (occurrence: None)
  Receive Date: 20050815
  Receipt Date: 20050721
  Transmission Date: 20060218
  Serious: Yes (Hospitalization)
  Sender: FDA-Public Use
  Company Number: 11906

PATIENT
  Age: 12 Year
  Sex: Male

DRUGS (9)
  1. METHOTREXATE [Suspect]
     Indication: JUVENILE ARTHRITIS
     Dosage: SEE IMAGE
     Route: 058
     Dates: start: 19980818, end: 19981028
  2. METHOTREXATE [Suspect]
     Indication: JUVENILE ARTHRITIS
     Dosage: SEE IMAGE
     Route: 058
     Dates: start: 19981029, end: 19990126
  3. METHOTREXATE [Suspect]
     Indication: JUVENILE ARTHRITIS
     Dosage: SEE IMAGE
     Route: 058
     Dates: start: 19990127, end: 19991216
  4. METHOTREXATE [Suspect]
     Indication: JUVENILE ARTHRITIS
     Dosage: SEE IMAGE
     Route: 058
     Dates: start: 19991217, end: 20010613
  5. METHOTREXATE [Suspect]
     Indication: JUVENILE ARTHRITIS
     Dosage: SEE IMAGE
     Route: 058
     Dates: start: 20010614, end: 20020401
  6. METHOTREXATE [Suspect]
     Indication: JUVENILE ARTHRITIS
     Dosage: SEE IMAGE
     Route: 058
     Dates: start: 20020401, end: 20040701
  7. METHOTREXATE [Suspect]
     Indication: JUVENILE ARTHRITIS
     Dosage: SEE IMAGE
     Route: 058
     Dates: start: 20041118, end: 20041125
  8. METHOTREXATE [Suspect]
     Indication: JUVENILE ARTHRITIS
     Dosage: SEE IMAGE
     Route: 058
     Dates: start: 20041126
  9. PREDNISOLONE [Concomitant]

REACTIONS (8)
  - CONDITION AGGRAVATED [None]
  - EPISTAXIS [None]
  - JUVENILE ARTHRITIS [None]
  - LYMPHADENITIS [None]
  - PHOTOPHOBIA [None]
  - RASH [None]
  - SPLENOMEGALY [None]
  - VOMITING [None]
